FAERS Safety Report 11505916 (Version 1)
Quarter: 2015Q3

REPORT INFORMATION
  Report Type: Spontaneous
  Country: US (occurrence: US)
  Receive Date: 20150915
  Receipt Date: 20150915
  Transmission Date: 20151125
  Serious: No
  Sender: FDA-Public Use
  Company Number: US-ROCHE-789158

PATIENT
  Sex: Male

DRUGS (3)
  1. ZOLOFT [Concomitant]
     Active Substance: SERTRALINE HYDROCHLORIDE
     Route: 065
  2. PEGASYS [Suspect]
     Active Substance: PEGINTERFERON ALFA-2A
     Indication: CHRONIC HEPATITIS C
     Route: 042
  3. RIBAVIRIN. [Suspect]
     Active Substance: RIBAVIRIN
     Indication: CHRONIC HEPATITIS C
     Dosage: FRE:  DAILY (DIVIDED DOSES).
     Route: 065

REACTIONS (7)
  - Productive cough [Unknown]
  - Ill-defined disorder [Unknown]
  - Asthenia [Unknown]
  - Epistaxis [Unknown]
  - Haemorrhage [Unknown]
  - Headache [Unknown]
  - Diarrhoea [Unknown]
